FAERS Safety Report 23466064 (Version 1)
Quarter: 2024Q1

REPORT INFORMATION
  Report Type: Spontaneous
  Country: GB (occurrence: GB)
  Receive Date: 20240201
  Receipt Date: 20240201
  Transmission Date: 20240409
  Serious: Yes (Other)
  Sender: FDA-Public Use
  Company Number: None

PATIENT

DRUGS (1)
  1. LAMOTRIGINE [Suspect]
     Active Substance: LAMOTRIGINE
     Indication: Bipolar disorder
     Dosage: 0.25 MG, QD (.25 IN MORNING)
     Route: 065
     Dates: start: 20231101

REACTIONS (2)
  - Rash [Recovering/Resolving]
  - Myalgia [Recovering/Resolving]
